FAERS Safety Report 7151089-0 (Version None)
Quarter: 2010Q4

REPORT INFORMATION
  Report Type: 
  Country: None (occurrence: None)
  Receive Date: 20101122
  Receipt Date: 20101118
  Transmission Date: 20110411
  Serious: Yes (Hospitalization)
  Sender: FDA-Public Use
  Company Number: 2010SP050801

PATIENT
  Age: 58 Year
  Sex: Female
  Weight: 51.2 kg

DRUGS (3)
  1. PEG-INTRON [Suspect]
     Indication: HEPATITIS C
     Dosage: SC
     Route: 058
     Dates: start: 20070608, end: 20090109
  2. REBETOL [Suspect]
     Indication: HEPATITIS C
     Dosage: PO
     Route: 048
     Dates: start: 20070608, end: 20090109
  3. PEGASYS [Suspect]
     Indication: HEPATITIS C
     Dates: end: 20090403

REACTIONS (4)
  - AUTOIMMUNE THROMBOCYTOPENIA [None]
  - CRYOGLOBULINAEMIA [None]
  - GLOMERULONEPHRITIS [None]
  - RENAL IMPAIRMENT [None]
